FAERS Safety Report 8332176-8 (Version None)
Quarter: 2012Q2

REPORT INFORMATION
  Report Type: 
  Country: None (occurrence: None)
  Receive Date: 20120503
  Receipt Date: 20120423
  Transmission Date: 20120825
  Serious: Yes (Life-Threatening, Hospitalization)
  Sender: FDA-Public Use
  Company Number: NL-BIOGENIDEC-2012BI011410

PATIENT
  Age: 48 Year
  Sex: Female

DRUGS (3)
  1. TYSABRI [Suspect]
     Indication: RELAPSING-REMITTING MULTIPLE SCLEROSIS
     Route: 042
     Dates: start: 20120202
  2. PERSANTIN [Concomitant]
     Indication: CEREBELLAR INFARCTION
     Dates: start: 20070306
  3. ASPIRIN [Concomitant]
     Indication: BRAIN STEM INFARCTION
     Dates: start: 20040810

REACTIONS (1)
  - TRANSIENT ISCHAEMIC ATTACK [None]
